FAERS Safety Report 5914937-5 (Version None)
Quarter: 2008Q4

REPORT INFORMATION
  Report Type: 
  Country: None (occurrence: None)
  Receive Date: 20081010
  Receipt Date: 20080929
  Transmission Date: 20090506
  Serious: Yes (Death, Hospitalization)
  Sender: FDA-Public Use
  Company Number: JP-JNJFOC-20080800318

PATIENT
  Sex: Male
  Weight: 66 kg

DRUGS (9)
  1. REMICADE [Suspect]
     Dosage: DOSE 7
     Route: 042
  2. REMICADE [Suspect]
     Dosage: DOSES 2 - 6
     Route: 042
  3. REMICADE [Suspect]
     Indication: CROHN'S DISEASE
     Dosage: INITIAL DOSE
     Route: 042
  4. ISCOTIN [Concomitant]
     Indication: ANTIBIOTIC PROPHYLAXIS
     Route: 048
  5. BONALON [Concomitant]
     Indication: OSTEOPOROSIS
     Route: 048
  6. RABEPRAZOLE SODIUM [Concomitant]
     Indication: REFLUX OESOPHAGITIS
     Route: 048
  7. DIFLUCAN [Concomitant]
     Indication: PNEUMONIA CRYPTOCOCCAL
     Route: 048
  8. PREDNISOLONE [Concomitant]
     Indication: CROHN'S DISEASE
     Route: 048
  9. URSO 250 [Concomitant]
     Indication: CHOLELITHIASIS
     Route: 048

REACTIONS (4)
  - DISSEMINATED INTRAVASCULAR COAGULATION [None]
  - HEPATIC FUNCTION ABNORMAL [None]
  - NON-HODGKIN'S LYMPHOMA [None]
  - RENAL IMPAIRMENT [None]
